FAERS Safety Report 12921076 (Version 1)
Quarter: 2016Q4

REPORT INFORMATION
  Report Type: Report from Study
  Country: US (occurrence: US)
  Receive Date: 20161107
  Receipt Date: 20161107
  Transmission Date: 20170207
  Serious: Yes (Hospitalization, Other)
  Sender: FDA-Public Use
  Company Number: US-GILEAD-2016-0241054

PATIENT
  Age: 67 Year
  Sex: Male

DRUGS (1)
  1. RANOLAZINE [Suspect]
     Active Substance: RANOLAZINE
     Indication: ATRIAL FIBRILLATION
     Dosage: 500 MG, UNK
     Route: 048

REACTIONS (1)
  - Cardiac failure [Unknown]
